FAERS Safety Report 9203808 (Version 1)
Quarter: 2013Q1

REPORT INFORMATION
  Report Type: Spontaneous
  Country: US (occurrence: None)
  Receive Date: 20120709
  Receipt Date: 20120709
  Transmission Date: 20140127
  Serious: No
  Sender: FDA-Public Use
  Company Number: 2012HGS-003547

PATIENT
  Age: 72 Year
  Sex: Female
  Weight: 51.71 kg

DRUGS (9)
  1. BENLYSTA [Suspect]
     Dosage: 1 IN 28 D
     Route: 041
     Dates: start: 20120224
  2. PLAQUENIL (HYDROXYCHLOROQUINE PHOSPHATE) (HYDROXYCHLOROQUINE PHOSPHATE) [Concomitant]
  3. CARVEDILOL (CARVEDILOL) (CARVEDILOL) [Concomitant]
  4. SPIRONOLACTONE HYDROCHLOROTHIAZIDE (ALDACTAZIDE A) (SPIRONOLACTONE, HYDROCHLOROTHIAZIDE) [Concomitant]
  5. CALCIUM (CALCIUM) (CALCIUM) [Concomitant]
  6. VITAMIN D3 (COLECALCIFEROL) (COLECALCIFEROL) [Concomitant]
  7. FISH OIL (FISH OIL) (FISH OIL) [Concomitant]
  8. BIOTIN (BIOTIN) (BIOTIN) [Concomitant]
  9. PREDNISONE (PREDNISONE) (PREDNISONE) [Concomitant]

REACTIONS (2)
  - Diarrhoea [None]
  - Systemic lupus erythematosus rash [None]
